FAERS Safety Report 18899885 (Version 1)
Quarter: 2021Q1

REPORT INFORMATION
  Report Type: Spontaneous
  Country: US (occurrence: US)
  Receive Date: 20210216
  Receipt Date: 20210216
  Transmission Date: 20210420
  Serious: Yes (Other)
  Sender: FDA-Public Use
  Company Number: US-PFIZER INC-2018431639

PATIENT
  Age: 52 Year
  Sex: Male
  Weight: 94 kg

DRUGS (4)
  1. LYRICA [Suspect]
     Active Substance: PREGABALIN
     Indication: MYALGIA
     Dosage: 75 MG, 2X/DAY
     Route: 048
  2. LYRICA [Suspect]
     Active Substance: PREGABALIN
     Indication: FIBROMYALGIA
  3. NORCO [Concomitant]
     Active Substance: ACETAMINOPHEN\HYDROCODONE BITARTRATE
     Indication: PAIN
     Dosage: 75 MG, AS NEEDED (1 TABLET UP TO TWO TIMES A DAY AS NEEDED)
     Route: 048
     Dates: start: 2016
  4. LYRICA [Suspect]
     Active Substance: PREGABALIN
     Indication: NEURALGIA

REACTIONS (1)
  - Cerebrovascular accident [Recovered/Resolved]

NARRATIVE: CASE EVENT DATE: 2019
